FAERS Safety Report 12196911 (Version 1)
Quarter: 2016Q1

REPORT INFORMATION
  Report Type: Report from Study
  Country: NL (occurrence: NL)
  Receive Date: 20160321
  Receipt Date: 20160321
  Transmission Date: 20160526
  Serious: Yes (Hospitalization, Other)
  Sender: FDA-Public Use
  Company Number: NL-ABBVIE-15P-114-1481921-00

PATIENT
  Sex: Male
  Weight: 103 kg

DRUGS (2)
  1. DUODOPA [Suspect]
     Active Substance: CARBIDOPA\LEVODOPA
     Indication: PARKINSON^S DISEASE
     Dosage: MD: 15.0, CD: 4.9, ED: 3.0, NO NIGHT DOSE
     Route: 050
     Dates: start: 20130813
  2. DUODOPA [Suspect]
     Active Substance: CARBIDOPA\LEVODOPA
     Dosage: MD: 15.0, CD: 4.5, ED: 2.0, NO NIGHT DOSE
     Route: 050

REACTIONS (4)
  - Malignant melanoma [Recovered/Resolved]
  - Disinhibition [Recovered/Resolved]
  - Hyperkinesia [Recovered/Resolved]
  - Unevaluable event [Recovered/Resolved]
